FAERS Safety Report 5046207-4 (Version None)
Quarter: 2006Q2

REPORT INFORMATION
  Report Type: 
  Country: None (occurrence: None)
  Receive Date: 20060629
  Receipt Date: 20060620
  Transmission Date: 20061013
  Serious: Yes (Hospitalization)
  Sender: FDA-Public Use
  Company Number: 2005BI013927

PATIENT
  Age: 56 Year
  Sex: Female
  Weight: 131.0895 kg

DRUGS (1)
  1. AVONEX [Suspect]
     Indication: MULTIPLE SCLEROSIS
     Dosage: 30 UG;QW;IM
     Route: 030
     Dates: start: 20010520

REACTIONS (4)
  - ARRHYTHMIA [None]
  - ATRIAL FLUTTER [None]
  - EXOSTOSIS [None]
  - TACHYCARDIA [None]
